FAERS Safety Report 7641699-6 (Version None)
Quarter: 2011Q3

REPORT INFORMATION
  Report Type: 
  Country: None (occurrence: None)
  Receive Date: 20110728
  Receipt Date: 20110719
  Transmission Date: 20111222
  Serious: Yes (Hospitalization)
  Sender: FDA-Public Use
  Company Number: HR-GLAXOSMITHKLINE-B0735396A

PATIENT

DRUGS (2)
  1. AMIODARONE HCL [Suspect]
     Indication: TACHYCARDIA FOETAL
     Route: 064
  2. DIGOXIN [Suspect]
     Indication: TACHYCARDIA FOETAL
     Dosage: .5MG THREE TIMES PER DAY
     Route: 064

REACTIONS (1)
  - RESPIRATORY DISTRESS [None]
